FAERS Safety Report 8055389-1 (Version None)
Quarter: 2012Q1

REPORT INFORMATION
  Report Type: 
  Country: None (occurrence: None)
  Receive Date: 20120119
  Receipt Date: 20120113
  Transmission Date: 20120608
  Serious: Yes (Death, Hospitalization)
  Sender: FDA-Public Use
  Company Number: JP-UCBSA-8046979

PATIENT
  Age: 45 Year
  Sex: Male
  Weight: 57.5 kg

DRUGS (9)
  1. CERTOLIZUMAB PEGOL [Suspect]
     Route: 058
     Dates: start: 20090109
  2. CERTOLIZUMAB PEGOL [Suspect]
     Indication: RHEUMATOID ARTHRITIS
     Dosage: UNKNOWN
     Route: 058
  3. PREDNISOLONE [Suspect]
     Indication: RHEUMATOID ARTHRITIS
     Dosage: DAILY DOSE: 5 MG
     Route: 048
     Dates: start: 20090207
  4. PROGRAF [Suspect]
     Indication: RHEUMATOID ARTHRITIS
     Route: 048
     Dates: start: 20081212, end: 20090519
  5. RABEPRAZOLE SODIUM [Concomitant]
     Dosage: DOSE FREQ.: DAILY
     Dates: start: 20081114
  6. LOXOPROFEN SODIUM [Concomitant]
     Dates: start: 20081114
  7. PREDNISOLONE [Suspect]
     Indication: RHEUMATOID ARTHRITIS
     Dosage: DAILY DOSE: 3 MG
     Route: 048
     Dates: start: 20090310
  8. CERTOLIZUMAB PEGOL [Suspect]
     Route: 058
  9. PROGRAF [Suspect]
     Dosage: DOSE FREQ.: DAILY
     Route: 048
     Dates: start: 20090525

REACTIONS (2)
  - COMPLETED SUICIDE [None]
  - ILEITIS [None]
